FAERS Safety Report 12068597 (Version 1)
Quarter: 2016Q1

REPORT INFORMATION
  Report Type: Report from Study
  Country: GB (occurrence: GB)
  Receive Date: 20160211
  Receipt Date: 20160211
  Transmission Date: 20160526
  Serious: Yes (Hospitalization, Other)
  Sender: FDA-Public Use
  Company Number: PHHO2016GB002029

PATIENT
  Sex: Male
  Weight: 124 kg

DRUGS (6)
  1. ZOLEDRONATE [Suspect]
     Active Substance: ZOLEDRONIC ACID
     Indication: METASTASES TO BONE
     Dosage: 4 MG, UNK
     Route: 042
     Dates: start: 20071213, end: 20080108
  2. VITAMIN D [Concomitant]
     Active Substance: CHOLECALCIFEROL
     Indication: METASTASES TO BONE
     Route: 065
  3. CALCIUM [Concomitant]
     Active Substance: CALCIUM
     Indication: METASTASES TO BONE
     Route: 065
  4. DOCETAXEL. [Suspect]
     Active Substance: DOCETAXEL
     Indication: METASTASES TO BONE
     Dosage: 160 MG, UNK
     Route: 042
     Dates: start: 20071218, end: 20080108
  5. DOCETAXEL. [Suspect]
     Active Substance: DOCETAXEL
     Dosage: 4 UNK, UNK
     Route: 042
     Dates: end: 20080311
  6. BICALUTAMIDE. [Concomitant]
     Active Substance: BICALUTAMIDE
     Indication: METASTASES TO BONE
     Dosage: 150 MG, UNK
     Route: 065
     Dates: start: 20071208

REACTIONS (2)
  - Palpitations [Recovered/Resolved with Sequelae]
  - Palpitations [Not Recovered/Not Resolved]

NARRATIVE: CASE EVENT DATE: 20080108
